FAERS Safety Report 15136703 (Version 1)
Quarter: 2018Q3

REPORT INFORMATION
  Report Type: Spontaneous
  Country: FR (occurrence: FR)
  Receive Date: 20180712
  Receipt Date: 20180712
  Transmission Date: 20181010
  Serious: Yes (Other)
  Sender: FDA-Public Use
  Company Number: FR-US WORLDMEDS, LLC-STA_00016373

PATIENT
  Age: 57 Year
  Sex: Male

DRUGS (1)
  1. APOMORPHINE HYDROCHLORIDE [Suspect]
     Active Substance: APOMORPHINE HYDROCHLORIDE
     Indication: ON AND OFF PHENOMENON
     Dosage: 5MG/H 8AM ? 8PM AT A DILUTION OF 7.5MG/ML 70 PERCENT; 3 MG/H AT NIGHT (7.5 MG/ML 70PERCENT)
     Route: 058

REACTIONS (1)
  - Eosinophilia [Recovered/Resolved]
